FAERS Safety Report 25460891 (Version 1)
Quarter: 2025Q2

REPORT INFORMATION
  Report Type: Spontaneous
  Country: CN (occurrence: CN)
  Receive Date: 20250620
  Receipt Date: 20250620
  Transmission Date: 20250716
  Serious: Yes (Life-Threatening, Other)
  Sender: BAYER HEALTHCARE PHARMACEUTICALS INC.
  Company Number: CN-BAYER-2025A081293

PATIENT
  Age: 80 Year
  Sex: Female
  Weight: 60 kg

DRUGS (2)
  1. ULTRAVIST [Suspect]
     Active Substance: IOPROMIDE
     Indication: Computerised tomogram limb
     Route: 042
     Dates: start: 20250610, end: 20250610
  2. ULTRAVIST [Suspect]
     Active Substance: IOPROMIDE
     Indication: Peripheral revascularisation

REACTIONS (10)
  - Contrast media allergy [Recovering/Resolving]
  - Aphasia [None]
  - Sensation of foreign body [None]
  - Laryngeal oedema [Recovering/Resolving]
  - Dry mouth [None]
  - Nausea [None]
  - Flushing [None]
  - Eyelid oedema [Recovering/Resolving]
  - Oxygen saturation decreased [Recovered/Resolved]
  - Lip oedema [Recovering/Resolving]

NARRATIVE: CASE EVENT DATE: 20250610
